FAERS Safety Report 17415280 (Version 1)
Quarter: 2020Q1

REPORT INFORMATION
  Report Type: Spontaneous
  Country: DE (occurrence: DE)
  Receive Date: 20200213
  Receipt Date: 20200213
  Transmission Date: 20200409
  Serious: Yes (Other)
  Sender: FDA-Public Use
  Company Number: DE-ALLERGAN-2005292US

PATIENT
  Sex: Male
  Weight: 3.26 kg

DRUGS (4)
  1. OMEPRAZOL [Concomitant]
     Active Substance: OMEPRAZOLE
     Indication: PRODUCT USED FOR UNKNOWN INDICATION
     Route: 064
  2. FOLSAEURE [Concomitant]
     Active Substance: FOLIC ACID
     Indication: PROPHYLAXIS OF NEURAL TUBE DEFECT
     Route: 064
     Dates: start: 20181108, end: 20181211
  3. ESCITALOPRAM OXALATE - BP [Suspect]
     Active Substance: ESCITALOPRAM OXALATE
     Indication: DEPRESSION
     Dosage: 22.5 MG, QD
     Route: 064
     Dates: start: 20181108, end: 20190724
  4. LAMOTRIGIN [Suspect]
     Active Substance: LAMOTRIGINE
     Indication: DEPRESSION
     Dosage: ACTUAL 200 [MG/D (100-0-100) ] 2 SEPARATED DOSES
     Route: 064
     Dates: start: 20181108, end: 20190724

REACTIONS (2)
  - Foetal exposure during pregnancy [Unknown]
  - Myoclonus [Recovered/Resolved]

NARRATIVE: CASE EVENT DATE: 20190724
